FAERS Safety Report 9435959 (Version 4)
Quarter: 2014Q3

REPORT INFORMATION
  Report Type: Spontaneous
  Country: US (occurrence: US)
  Receive Date: 20130801
  Receipt Date: 20140711
  Transmission Date: 20150326
  Serious: Yes (Hospitalization, Other)
  Sender: FDA-Public Use
  Company Number: US-009507513-1307USA017054

PATIENT
  Sex: Female
  Weight: 102.95 kg

DRUGS (3)
  1. ALBUTEROL. [Concomitant]
     Active Substance: ALBUTEROL
     Indication: ASTHMA
     Dosage: 2 PUFFS DAILY PRN
     Route: 055
     Dates: start: 2003
  2. NUVARING [Suspect]
     Active Substance: ETHINYL ESTRADIOL\ETONOGESTREL
     Indication: CONTRACEPTION
     Dosage: UNK
     Route: 067
     Dates: start: 200910, end: 201005
  3. ALBUTEROL. [Concomitant]
     Active Substance: ALBUTEROL
     Indication: ASTHMA

REACTIONS (9)
  - Deep vein thrombosis [Unknown]
  - Contusion [Unknown]
  - Thrombosis [Unknown]
  - Coagulopathy [Unknown]
  - Chest pain [Recovered/Resolved]
  - Thrombosis [Unknown]
  - Abortion induced [Recovered/Resolved]
  - Exposure during pregnancy [Unknown]
  - Pulmonary embolism [Unknown]

NARRATIVE: CASE EVENT DATE: 2010
